FAERS Safety Report 10215161 (Version 1)
Quarter: 2014Q2

REPORT INFORMATION
  Report Type: Spontaneous
  Country: IE (occurrence: IE)
  Receive Date: 20140603
  Receipt Date: 20140603
  Transmission Date: 20141212
  Serious: Yes (Hospitalization)
  Sender: FDA-Public Use
  Company Number: PHHY2014IE064544

PATIENT
  Age: 83 Year
  Sex: Male
  Weight: 82 kg

DRUGS (3)
  1. ATECOR CT [Suspect]
     Indication: HYPERTENSION
     Dosage: 125 MG, QD
     Route: 048
     Dates: start: 200509, end: 20140304
  2. FEXOFENADINE [Concomitant]
     Indication: NASAL POLYPS
     Dosage: 120 MG, QD
     Route: 048
  3. SIMVASTATIN [Concomitant]
     Dosage: 40 MG, QD
     Route: 048

REACTIONS (8)
  - Dehydration [Recovered/Resolved]
  - Blood creatinine increased [Recovered/Resolved]
  - Renal failure acute [Recovered/Resolved]
  - Weight decreased [Recovered/Resolved]
  - Decreased appetite [Recovered/Resolved]
  - Insomnia [Recovered/Resolved]
  - Constipation [Recovered/Resolved]
  - Hypotension [Recovered/Resolved]
